FAERS Safety Report 18195368 (Version 2)
Quarter: 2021Q1

REPORT INFORMATION
  Report Type: Spontaneous
  Country: JP (occurrence: JP)
  Receive Date: 20200825
  Receipt Date: 20210330
  Transmission Date: 20210419
  Serious: Yes (Hospitalization, Other)
  Sender: FDA-Public Use
  Company Number: JP-CELGENEUS-JPN-20200805552

PATIENT
  Age: 75 Year
  Sex: Male
  Weight: 43.7 kg

DRUGS (7)
  1. ABRAXANE [Suspect]
     Active Substance: PACLITAXEL
     Indication: LUNG SQUAMOUS CELL CARCINOMA METASTATIC
     Dosage: 100 MILLIGRAM
     Route: 041
     Dates: start: 20200729, end: 20200805
  2. APREPITANT. [Concomitant]
     Active Substance: APREPITANT
     Dosage: 80 MILLIGRAM
     Route: 048
     Dates: start: 20200730, end: 20200731
  3. DECADRON [Concomitant]
     Active Substance: DEXAMETHASONE
     Indication: PROPHYLAXIS OF NAUSEA AND VOMITING
     Dosage: 1 MILLIGRAM
     Route: 048
     Dates: start: 20200730, end: 20200801
  4. CARBOPLATIN. [Concomitant]
     Active Substance: CARBOPLATIN
     Indication: LUNG SQUAMOUS CELL CARCINOMA METASTATIC
     Route: 041
     Dates: start: 20200729, end: 20200729
  5. GRANISETRON [Concomitant]
     Active Substance: GRANISETRON
     Indication: PROPHYLAXIS OF NAUSEA AND VOMITING
     Dosage: 3 MILLIGRAM
     Route: 041
     Dates: start: 20200729, end: 20200729
  6. DEXART [Concomitant]
     Active Substance: DEXAMETHASONE SODIUM PHOSPHATE
     Indication: PROPHYLAXIS OF NAUSEA AND VOMITING
     Dosage: 3.3 MILLIGRAM
     Route: 041
     Dates: start: 20200729, end: 20200729
  7. APREPITANT. [Concomitant]
     Active Substance: APREPITANT
     Indication: PROPHYLAXIS OF NAUSEA AND VOMITING
     Dosage: 125 MILLIGRAM
     Route: 048
     Dates: start: 20200729, end: 20200729

REACTIONS (3)
  - Stress cardiomyopathy [Unknown]
  - Atrial fibrillation [Recovered/Resolved]
  - Pericarditis malignant [Unknown]

NARRATIVE: CASE EVENT DATE: 20200805
